FAERS Safety Report 7729940-2 (Version None)
Quarter: 2011Q3

REPORT INFORMATION
  Report Type: 
  Country: None (occurrence: None)
  Receive Date: 20110906
  Receipt Date: 20110829
  Transmission Date: 20111222
  Serious: Yes (Life-Threatening, Hospitalization)
  Sender: FDA-Public Use
  Company Number: US-ROCHE-799482

PATIENT
  Sex: Male

DRUGS (2)
  1. COPEGUS [Suspect]
     Dosage: ROUTE, DOSE AND FREQUENCY WAS NOT REPORTED.
     Route: 065
     Dates: start: 20110811
  2. PEGASYS [Suspect]
     Dosage: ROUTE, DOSE AND FREQUENCY WAS NOT REPORTED.
     Route: 065
     Dates: start: 20110811

REACTIONS (4)
  - DEMENTIA [None]
  - ABASIA [None]
  - BLOOD BILIRUBIN INCREASED [None]
  - APHASIA [None]
